FAERS Safety Report 14942501 (Version 2)
Quarter: 2018Q2

REPORT INFORMATION
  Report Type: Report from Study
  Country: US (occurrence: US)
  Receive Date: 20180528
  Receipt Date: 20180614
  Transmission Date: 20180711
  Serious: Yes (Hospitalization, Other)
  Sender: FDA-Public Use
  Company Number: US-AMGEN-USASL2018069417

PATIENT
  Age: 82 Year
  Sex: Female
  Weight: 91 kg

DRUGS (41)
  1. AUGMENTIN [Concomitant]
     Active Substance: AMOXICILLIN\CLAVULANATE POTASSIUM
     Dosage: UNK UNK, Q12H (875 TO125 MG)
     Route: 048
  2. TYLENOL [Concomitant]
     Active Substance: ACETAMINOPHEN
     Indication: PAIN
     Dosage: 650 MG, Q6H
     Route: 048
  3. DOCUSATE SODIUM. [Concomitant]
     Active Substance: DOCUSATE SODIUM
     Dosage: 100 MG, BID
     Route: 048
  4. HYDROCODONE/ACETAMINOPHEN [Concomitant]
     Active Substance: ACETAMINOPHEN\HYDROCODONE
     Indication: PAIN
     Dosage: 5.325 MG, Q6H
     Route: 048
  5. MAGNESIA [Concomitant]
     Active Substance: MAGNESIUM HYDROXIDE
     Dosage: 30 ML, QID
     Route: 048
  6. REPATHA [Suspect]
     Active Substance: EVOLOCUMAB
     Indication: HYPERLIPIDAEMIA
     Dosage: 420 MG/3.5 ML, UNK
     Route: 058
  7. HEPARIN [Concomitant]
     Active Substance: HEPARIN SODIUM
     Indication: THROMBOSIS PROPHYLAXIS
     Dosage: 5000 UNIT, Q8H
     Route: 058
  8. LOPRESSOR [Concomitant]
     Active Substance: METOPROLOL TARTRATE
     Indication: HYPERTENSION
     Dosage: 25 MG, QD
     Route: 048
  9. ANCEF [Concomitant]
     Active Substance: CEFAZOLIN SODIUM
     Dosage: 2000 MG, UNK
     Route: 042
  10. GUAIFENESIN. [Concomitant]
     Active Substance: GUAIFENESIN
     Dosage: 100 MG, Q4H
     Route: 048
  11. VITAMIN C [Concomitant]
     Active Substance: ASCORBIC ACID
     Dosage: UNK UNK, AS NECESSARY
     Route: 048
  12. POLYETHYLENE GLYCOL 3350. [Concomitant]
     Active Substance: POLYETHYLENE GLYCOL 3350
     Dosage: 17 G, QD
     Route: 048
  13. NIFEDIPINE. [Concomitant]
     Active Substance: NIFEDIPINE
     Dosage: 30 MG, QD
     Route: 048
  14. ALBUTEROL W/IPRATROPIUM [Concomitant]
     Active Substance: ALBUTEROL\IPRATROPIUM
     Dosage: UNK
  15. CHLORASEPTIC SORE THROAT [Concomitant]
     Active Substance: PHENOL
     Dosage: UNK UNK, QID 180 ML
     Route: 048
  16. POTASSIUM CHLORIDE. [Concomitant]
     Active Substance: POTASSIUM CHLORIDE
     Dosage: 20 MEQ, QD
     Route: 048
  17. VANCOMYCIN [Concomitant]
     Active Substance: VANCOMYCIN
     Dosage: 1.750 MG, UNK Q27 H
     Route: 042
  18. HYDRALAZINE [Concomitant]
     Active Substance: HYDRALAZINE HYDROCHLORIDE
     Dosage: 25 MG, Q6H
     Route: 048
  19. AMLODIPINE [Concomitant]
     Active Substance: AMLODIPINE BESYLATE
     Dosage: 5 MG, QD
     Route: 048
  20. KEFLEX [Concomitant]
     Active Substance: CEPHALEXIN
     Dosage: 500 MG, Q12H
     Route: 048
  21. REPATHA [Suspect]
     Active Substance: EVOLOCUMAB
     Indication: DYSLIPIDAEMIA
  22. ZOFRAN [Concomitant]
     Active Substance: ONDANSETRON HYDROCHLORIDE
     Indication: NAUSEA
     Dosage: 4 MG, Q8H
     Route: 048
  23. CHOLETEC [Concomitant]
     Active Substance: TECHNETIUM TC-99M MEBROFENIN
     Dosage: 5.6 MCI, UNK
     Route: 042
  24. PREMARIN [Concomitant]
     Active Substance: ESTROGENS, CONJUGATED
     Indication: ATROPHIC VULVOVAGINITIS
     Dosage: UNK UNK, 3 TIMES/WK
  25. PIPERACILLIN AND TAZOBACTAM [Concomitant]
     Active Substance: PIPERACILLIN SODIUM\TAZOBACTAM SODIUM
     Dosage: 3.375 G, Q8H
     Route: 042
  26. MELATONIN [Concomitant]
     Active Substance: MELATONIN
     Dosage: 3 MG, QD
     Route: 048
  27. PRINIVIL [Concomitant]
     Active Substance: LISINOPRIL
     Dosage: 40 MG, QD
     Route: 048
  28. KEFZOL [Concomitant]
     Active Substance: CEFAZOLIN SODIUM
     Dosage: 2000 MG, UNK
     Route: 042
  29. PLAVIX [Concomitant]
     Active Substance: CLOPIDOGREL BISULFATE
     Indication: HYPERLIPIDAEMIA
     Dosage: 75 MG, QD
     Route: 048
  30. ENOXAPARIN [Concomitant]
     Active Substance: ENOXAPARIN
     Dosage: 40 MG/0.4 ML, QD
     Route: 058
  31. LASIX [Concomitant]
     Active Substance: FUROSEMIDE
     Indication: HYPERTENSION
     Dosage: 20 MG, QD
     Route: 048
  32. DITROPAN [Concomitant]
     Active Substance: OXYBUTYNIN CHLORIDE
     Dosage: 5 MG, QD
     Route: 048
  33. SIMETHICONE (DIMETHICONE) [Concomitant]
     Active Substance: DIMETHICONE
     Indication: FLATULENCE
     Dosage: 80 MG, Q6H
     Route: 048
  34. ACETAMINOPHEN. [Concomitant]
     Active Substance: ACETAMINOPHEN
     Dosage: 325 MG, Q6H
     Route: 048
  35. ASPIRIN. [Concomitant]
     Active Substance: ASPIRIN
     Indication: CORONARY ARTERY DISEASE
     Dosage: 81 MG, QD
     Route: 048
  36. PROTONIX [Concomitant]
     Active Substance: PANTOPRAZOLE SODIUM
     Dosage: 40 MG, QD
     Route: 048
  37. ZESTRIL [Concomitant]
     Active Substance: LISINOPRIL
     Dosage: 40 MG, QD
     Route: 048
  38. DEXTROSE + NAK [Concomitant]
     Dosage: UNK
     Route: 042
  39. SALINE [Concomitant]
     Active Substance: SODIUM CHLORIDE
     Dosage: 10 ML, UNK
     Route: 042
  40. LACTOBACILLUS RHAMNOSUS [Concomitant]
     Active Substance: LACTOBACILLUS RHAMNOSUS
     Dosage: 80 MG, QD
     Route: 048
  41. KLOR-CON [Concomitant]
     Active Substance: POTASSIUM CHLORIDE
     Dosage: 20 MEQ, BID
     Route: 048

REACTIONS (8)
  - Asthenia [Unknown]
  - Vomiting [Unknown]
  - Nausea [Unknown]
  - Dry mouth [Unknown]
  - Fatigue [Unknown]
  - Respiratory failure [Recovered/Resolved]
  - Systemic inflammatory response syndrome [Recovering/Resolving]
  - Diarrhoea [Unknown]

NARRATIVE: CASE EVENT DATE: 2018
